FAERS Safety Report 14007089 (Version 1)
Quarter: 2017Q3

REPORT INFORMATION
  Report Type: Spontaneous
  Country: US (occurrence: US)
  Receive Date: 20170923
  Receipt Date: 20170923
  Transmission Date: 20171128
  Serious: No
  Sender: FDA-Public Use
  Company Number: None

PATIENT
  Age: 13 Month
  Sex: Male

DRUGS (1)
  1. PREDNISOLONE SOLUTION [Suspect]
     Active Substance: PREDNISOLONE
     Indication: BRONCHOSPASM
     Route: 048
     Dates: start: 20170922, end: 20170923

REACTIONS (1)
  - Oral discomfort [None]

NARRATIVE: CASE EVENT DATE: 20170923
